FAERS Safety Report 10474570 (Version 1)
Quarter: 2014Q3

REPORT INFORMATION
  Report Type: Spontaneous
  Country: GB (occurrence: GB)
  Receive Date: 20140924
  Receipt Date: 20140924
  Transmission Date: 20150326
  Serious: Yes (Other)
  Sender: FDA-Public Use
  Company Number: GB-NOVOPROD-422556

PATIENT
  Age: 55 Year
  Sex: Female
  Weight: 67 kg

DRUGS (1)
  1. VICTOZA [Suspect]
     Active Substance: LIRAGLUTIDE
     Indication: TYPE 2 DIABETES MELLITUS
     Dosage: UNKNOWN
     Route: 065

REACTIONS (3)
  - Chest discomfort [Unknown]
  - Dyspnoea [Unknown]
  - Dry mouth [Recovered/Resolved]

NARRATIVE: CASE EVENT DATE: 20140401
